FAERS Safety Report 26138151 (Version 1)
Quarter: 2025Q4

REPORT INFORMATION
  Report Type: Spontaneous
  Country: US (occurrence: US)
  Receive Date: 20251210
  Receipt Date: 20251210
  Transmission Date: 20260118
  Serious: No
  Sender: CIPLA
  Company Number: US-CIPLA LTD.-2025US01474

PATIENT

DRUGS (2)
  1. BUDESONIDE [Suspect]
     Active Substance: BUDESONIDE
     Indication: Bronchitis
     Dosage: UNK STRENGTH (1 MG/2 ML)
     Dates: start: 20250128
  2. BUDESONIDE [Suspect]
     Active Substance: BUDESONIDE
     Indication: Asthma

REACTIONS (4)
  - Poor quality product administered [Unknown]
  - Product contamination [Unknown]
  - Liquid product physical issue [Unknown]
  - Product quality issue [Unknown]

NARRATIVE: CASE EVENT DATE: 20250128
